FAERS Safety Report 6869869-5 (Version None)
Quarter: 2010Q3

REPORT INFORMATION
  Report Type: 
  Country: None (occurrence: None)
  Receive Date: 20100722
  Receipt Date: 20080826
  Transmission Date: 20110219
  Serious: No
  Sender: FDA-Public Use
  Company Number: US-PFIZER INC-2008072169

PATIENT
  Age: 57 Year
  Sex: Female

DRUGS (4)
  1. CHANTIX [Suspect]
     Indication: SMOKING CESSATION THERAPY
     Dates: start: 20060101
  2. TUMS [Interacting]
     Indication: NAUSEA
  3. TUMS [Interacting]
     Indication: ABDOMINAL PAIN UPPER
  4. ANTIHYPERTENSIVES [Concomitant]

REACTIONS (6)
  - ABDOMINAL PAIN UPPER [None]
  - BLOOD PRESSURE DECREASED [None]
  - DRUG INTERACTION [None]
  - INCORRECT DOSE ADMINISTERED [None]
  - NAUSEA [None]
  - NEPHROLITHIASIS [None]
